FAERS Safety Report 5816621-5 (Version None)
Quarter: 2008Q3

REPORT INFORMATION
  Report Type: 
  Country: None (occurrence: None)
  Receive Date: 20080721
  Receipt Date: 20080709
  Transmission Date: 20090109
  Serious: Yes (Hospitalization)
  Sender: FDA-Public Use
  Company Number: CH-PFIZER INC-2008056917

PATIENT
  Sex: Female
  Weight: 68 kg

DRUGS (3)
  1. SUTENT [Suspect]
     Dates: start: 20060522, end: 20070615
  2. SUTENT [Suspect]
     Dates: start: 20070926, end: 20071207
  3. SUTENT [Suspect]

REACTIONS (3)
  - ADRENAL INSUFFICIENCY [None]
  - HYPONATRAEMIA [None]
  - HYPOTHYROIDISM [None]
